FAERS Safety Report 4494471-2 (Version None)
Quarter: 2004Q4

REPORT INFORMATION
  Report Type: 
  Country: None (occurrence: None)
  Receive Date: 20041102
  Receipt Date: 20041021
  Transmission Date: 20050328
  Serious: Yes (Other)
  Sender: FDA-Public Use
  Company Number: 2004240918GB

PATIENT

DRUGS (2)
  1. GENOTROPIN [Suspect]
     Dosage: SEE IMAGE
     Route: 058
     Dates: end: 20040704
  2. GENOTROPIN [Suspect]
     Dosage: SEE IMAGE
     Route: 058
     Dates: start: 20040704

REACTIONS (1)
  - NECK MASS [None]
